FAERS Safety Report 23237486 (Version 5)
Quarter: 2024Q2

REPORT INFORMATION
  Report Type: Report from Study
  Country: JP (occurrence: JP)
  Receive Date: 20231128
  Receipt Date: 20240422
  Transmission Date: 20240716
  Serious: Yes (Life-Threatening, Hospitalization, Other)
  Sender: FDA-Public Use
  Company Number: JP-ONO-2023JP029259

PATIENT
  Age: 80 Year
  Sex: Male
  Weight: 57 kg

DRUGS (22)
  1. BRAFTOVI [Suspect]
     Active Substance: ENCORAFENIB
     Indication: Colon cancer
     Dosage: 300 MG, EVERYDAY
     Route: 048
     Dates: start: 20230901, end: 20230907
  2. BRAFTOVI [Suspect]
     Active Substance: ENCORAFENIB
     Dosage: 300 MG, EVERYDAY
     Route: 048
     Dates: start: 20240222, end: 20240320
  3. BRAFTOVI [Suspect]
     Active Substance: ENCORAFENIB
     Dosage: UNK
     Route: 048
  4. CETUXIMAB [Suspect]
     Active Substance: CETUXIMAB
     Indication: Colon cancer
     Dosage: 250 MG
     Route: 065
     Dates: start: 20230901, end: 20230901
  5. CETUXIMAB [Suspect]
     Active Substance: CETUXIMAB
     Dosage: 500 MG
     Route: 065
     Dates: start: 20240307, end: 20240307
  6. CETUXIMAB [Suspect]
     Active Substance: CETUXIMAB
     Dosage: UNK
     Route: 065
  7. CLOPIDOGREL BISULFATE [Concomitant]
     Active Substance: CLOPIDOGREL BISULFATE
     Dosage: 75 MG, EVERYDAY
     Route: 048
     Dates: start: 20231013, end: 20231101
  8. EZETIMIBE\ROSUVASTATIN [Concomitant]
     Active Substance: EZETIMIBE\ROSUVASTATIN
     Dosage: 10 MG, EVERYDAY
     Route: 048
     Dates: start: 20231013, end: 20231101
  9. EZETIMIBE\ROSUVASTATIN [Concomitant]
     Active Substance: EZETIMIBE\ROSUVASTATIN
     Dosage: UNK
     Route: 048
     Dates: end: 20240327
  10. EDOXABAN TOSYLATE [Concomitant]
     Active Substance: EDOXABAN TOSYLATE
     Dosage: 15 MG, EVERYDAY
     Route: 048
     Dates: start: 20231013, end: 20231101
  11. LANSOPRAZOLE [Concomitant]
     Active Substance: LANSOPRAZOLE
     Dosage: 15 MG, EVERYDAY
     Route: 065
     Dates: start: 20231013, end: 20231101
  12. CANDESARTAN [Concomitant]
     Active Substance: CANDESARTAN
     Dosage: 2 MG, EVERYDAY
     Route: 048
     Dates: start: 20231013, end: 20231101
  13. FERROUS SULFATE [Concomitant]
     Active Substance: FERROUS SULFATE
     Dosage: 105 MG, EVERYDAY
     Route: 048
     Dates: start: 20231013, end: 20231101
  14. NIFEDIPINE [Concomitant]
     Active Substance: NIFEDIPINE
     Dosage: 5 MG, EVERYDAY
     Route: 048
     Dates: start: 20231013, end: 20231101
  15. LINAGLIPTIN [Concomitant]
     Active Substance: LINAGLIPTIN
     Dosage: 5 MG, EVERYDAY
     Route: 048
     Dates: start: 20231013, end: 20231101
  16. LINAGLIPTIN [Concomitant]
     Active Substance: LINAGLIPTIN
     Dosage: 5 MG, EVERYDAY
     Route: 048
     Dates: end: 20240327
  17. BISOPROLOL FUMARATE [Concomitant]
     Active Substance: BISOPROLOL FUMARATE
     Dosage: 2.5 MG, EVERYDAY
     Route: 048
     Dates: end: 20240327
  18. AZOSEMIDE [Concomitant]
     Active Substance: AZOSEMIDE
     Dosage: 30 MG, EVERYDAY
     Route: 048
     Dates: end: 20240327
  19. INSULIN GLARGINE [Concomitant]
     Active Substance: INSULIN GLARGINE
     Dosage: (300 UNITS/3 ML) BOTTLE, EVERYDAY
     Route: 065
     Dates: end: 20240327
  20. HUMALOG [Concomitant]
     Active Substance: INSULIN LISPRO
     Dosage: (300 UNITS/3 ML) BOTTLE, EVERYDAY EVERYDAY
     Route: 065
     Dates: end: 20240327
  21. TAMSULOSIN HYDROCHLORIDE [Concomitant]
     Active Substance: TAMSULOSIN HYDROCHLORIDE
     Dosage: 0.2 MG, EVERYDAY
     Route: 048
     Dates: end: 20240327
  22. DUTASTERIDE [Concomitant]
     Active Substance: DUTASTERIDE
     Dosage: 0.5 MG, EVERYDAY
     Route: 048
     Dates: end: 20240327

REACTIONS (4)
  - Subdural haematoma [Recovered/Resolved]
  - Subdural haematoma [Recovered/Resolved]
  - Cardiac failure congestive [Recovered/Resolved]
  - Refusal of treatment by patient [Unknown]

NARRATIVE: CASE EVENT DATE: 20230907
